FAERS Safety Report 13269470 (Version 1)
Quarter: 2017Q1

REPORT INFORMATION
  Report Type: Spontaneous
  Country: FR (occurrence: FR)
  Receive Date: 20170224
  Receipt Date: 20170224
  Transmission Date: 20170428
  Serious: Yes (Hospitalization)
  Sender: FDA-Public Use
  Company Number: FR-ASTRAZENECA-2017SE19650

PATIENT
  Age: 17309 Day
  Sex: Female

DRUGS (10)
  1. LERCAPRESS [Suspect]
     Active Substance: ENALAPRIL MALEATE\LERCANIDIPINE HYDROCHLORIDE
     Dosage: 20/10 MG (ITOTAL DOSE OF 260 MG OF ENALAPRIL AND 130 MG OF LERCANINDIPIN).
     Route: 048
     Dates: start: 20170117
  2. JANUMET [Suspect]
     Active Substance: METFORMIN HYDROCHLORIDE\SITAGLIPTIN PHOSPHATE
     Dosage: 14 PILLS OF JANUMET 50/1000 MG (520 MG OF SITAGLIPTINE AND 14 GRAMS OF METFORMIN).
     Route: 048
  3. ONGLYZA [Suspect]
     Active Substance: SAXAGLIPTIN HYDROCHLORIDE
     Dosage: 9 PILLS OF 5 MG (TOTAL DOSE OF 45 MG)
     Route: 048
     Dates: start: 20170117
  4. COLCHIMAX [Suspect]
     Active Substance: COLCHICINE\DICYCLOMINE HYDROCHLORIDE
     Dosage: 25 PILLS (TOTAL DOSE: 25 MG)
     Route: 048
     Dates: start: 20170117
  5. LERCAPRESS [Suspect]
     Active Substance: ENALAPRIL MALEATE\LERCANIDIPINE HYDROCHLORIDE
     Route: 048
  6. JANUMET [Suspect]
     Active Substance: METFORMIN HYDROCHLORIDE\SITAGLIPTIN PHOSPHATE
     Route: 048
     Dates: start: 20170117
  7. ONGLYZA [Suspect]
     Active Substance: SAXAGLIPTIN HYDROCHLORIDE
     Route: 048
  8. SPIRONOLACTONE. [Suspect]
     Active Substance: SPIRONOLACTONE
     Route: 048
  9. SPIRONOLACTONE. [Suspect]
     Active Substance: SPIRONOLACTONE
     Dosage: 15 PILLS ( TOTAL DOSE: 1125 MG)
     Route: 048
     Dates: start: 20170117
  10. COLCHIMAX [Suspect]
     Active Substance: COLCHICINE\DICYCLOMINE HYDROCHLORIDE
     Route: 048

REACTIONS (5)
  - Abdominal pain [Recovered/Resolved]
  - Poisoning [Recovered/Resolved]
  - Vomiting [Recovered/Resolved]
  - Sinus tachycardia [Recovered/Resolved]
  - Nausea [Recovered/Resolved]

NARRATIVE: CASE EVENT DATE: 20170117
